FAERS Safety Report 13706328 (Version 5)
Quarter: 2018Q2

REPORT INFORMATION
  Report Type: Spontaneous
  Country: US (occurrence: US)
  Receive Date: 20170630
  Receipt Date: 20180418
  Transmission Date: 20180711
  Serious: No
  Sender: FDA-Public Use
  Company Number: US-PFIZER INC-2017281682

PATIENT
  Age: 62 Year
  Sex: Female
  Weight: 64 kg

DRUGS (4)
  1. IBRANCE [Suspect]
     Active Substance: PALBOCICLIB
     Dosage: 125 MG, CYCLIC(1CAP 1-21 DAYS Q28/DAYS)
     Route: 048
     Dates: start: 20170613
  2. IBRANCE [Suspect]
     Active Substance: PALBOCICLIB
     Dosage: 125 MG, CYCLIC, (DAY 1-21 Q 28 DAYS)
     Route: 048
     Dates: start: 20170614
  3. IBRANCE [Suspect]
     Active Substance: PALBOCICLIB
     Dosage: 125 MG, CYCLIC (DAYS 1-21 Q28 DAYS)
     Route: 048
     Dates: start: 20170618, end: 201802
  4. IBRANCE [Suspect]
     Active Substance: PALBOCICLIB
     Indication: BREAST CANCER METASTATIC
     Dosage: 125 MG, CYCLIC, (DAY 1-21 Q 28 DAYS)
     Route: 048
     Dates: start: 20170613

REACTIONS (5)
  - White blood cell count decreased [Unknown]
  - Neoplasm progression [Unknown]
  - Nausea [Unknown]
  - Alopecia [Unknown]
  - Cough [Not Recovered/Not Resolved]
